FAERS Safety Report 23907684 (Version 1)
Quarter: 2024Q2

REPORT INFORMATION
  Report Type: Spontaneous
  Country: CN (occurrence: CN)
  Receive Date: 20240528
  Receipt Date: 20240528
  Transmission Date: 20240715
  Serious: Yes (Hospitalization)
  Sender: FDA-Public Use
  Company Number: CN-91440300279544901A-J2024HPR000294

PATIENT
  Age: 57 Year
  Sex: Male

DRUGS (1)
  1. ENOXAPARIN SODIUM [Suspect]
     Active Substance: ENOXAPARIN SODIUM
     Indication: Thrombosis prophylaxis
     Dosage: 0.3ML,QD
     Dates: start: 20240501, end: 20240503

REACTIONS (2)
  - Vascular access complication [Unknown]
  - Haematoma [Unknown]

NARRATIVE: CASE EVENT DATE: 20240501
